FAERS Safety Report 4807306-2 (Version None)
Quarter: 2005Q4

REPORT INFORMATION
  Report Type: 
  Country: None (occurrence: None)
  Receive Date: 20051020
  Receipt Date: 20051020
  Transmission Date: 20060501
  Serious: Yes (Hospitalization)
  Sender: FDA-Public Use
  Company Number: None

PATIENT
  Age: 75 Year
  Sex: Female

DRUGS (8)
  1. PREDNISONE [Suspect]
     Indication: ANGIONEUROTIC OEDEMA
     Dosage: TAPER
  2. TYLENOL (CAPLET) [Concomitant]
  3. HYDROCHLOROTHIAZIDE [Concomitant]
  4. CITALOPRAM [Concomitant]
  5. LEVOTHYROXINE [Concomitant]
  6. GEMFIBROZIL [Concomitant]
  7. OXYBUTYNIN [Concomitant]
  8. POTASSIUM CHLORIDE [Concomitant]

REACTIONS (2)
  - PSYCHOTIC DISORDER [None]
  - SUICIDAL IDEATION [None]
